FAERS Safety Report 8914703 (Version 2)
Quarter: 2013Q1

REPORT INFORMATION
  Report Type: Spontaneous
  Country: US (occurrence: US)
  Receive Date: 20121119
  Receipt Date: 20130214
  Transmission Date: 20140127
  Serious: No
  Sender: FDA-Public Use
  Company Number: US-009507513-1211USA004817

PATIENT
  Sex: Female
  Weight: 59.41 kg

DRUGS (1)
  1. IMPLANON [Suspect]
     Indication: CONTRACEPTION
     Dosage: 1 DF, UNK
     Route: 059
     Dates: start: 20120709

REACTIONS (3)
  - Metrorrhagia [Not Recovered/Not Resolved]
  - Medical device complication [Unknown]
  - Product quality issue [Unknown]
